FAERS Safety Report 19133920 (Version 2)
Quarter: 2024Q3

REPORT INFORMATION
  Report Type: Spontaneous
  Country: GR (occurrence: GR)
  Receive Date: 20210414
  Receipt Date: 20240711
  Transmission Date: 20241017
  Serious: No
  Sender: ASTELLAS
  Company Number: GR-ASTELLAS-2021US013036

PATIENT
  Age: 72 Year
  Sex: Male

DRUGS (2)
  1. XTANDI [Suspect]
     Active Substance: ENZALUTAMIDE
     Indication: Prostatic specific antigen increased
     Dosage: UNK, UNKNOWN FREQ.
     Route: 065
     Dates: start: 201901
  2. XTANDI [Suspect]
     Active Substance: ENZALUTAMIDE
     Indication: Prostatic disorder

REACTIONS (2)
  - Prostatic specific antigen increased [Not Recovered/Not Resolved]
  - Off label use [Unknown]

NARRATIVE: CASE EVENT DATE: 20190101
